FAERS Safety Report 21937517 (Version 2)
Quarter: 2024Q4

REPORT INFORMATION
  Report Type: Report from Study
  Country: US (occurrence: US)
  Receive Date: 20230201
  Receipt Date: 20241104
  Transmission Date: 20250115
  Serious: No
  Sender: TAKEDA
  Company Number: US-TAKEDA-2023TUS010885

PATIENT
  Sex: Female
  Weight: 50 kg

DRUGS (1)
  1. PRUCALOPRIDE [Suspect]
     Active Substance: PRUCALOPRIDE
     Indication: Constipation
     Dosage: 2 MILLIGRAM, QD
     Route: 065

REACTIONS (3)
  - Gastrointestinal disorder [Unknown]
  - Insurance issue [Unknown]
  - Product use issue [Unknown]
